FAERS Safety Report 21302086 (Version 6)
Quarter: 2024Q4

REPORT INFORMATION
  Report Type: Report from Study
  Country: MX (occurrence: MX)
  Receive Date: 20220907
  Receipt Date: 20241223
  Transmission Date: 20250115
  Serious: Yes (Other)
  Sender: NOVARTIS
  Company Number: MX-NOVARTISPH-NVSC2022MX201426

PATIENT
  Sex: Female
  Weight: 80 kg

DRUGS (3)
  1. TASIGNA [Suspect]
     Active Substance: NILOTINIB
     Indication: Chronic myeloid leukaemia
     Dosage: 1 DOSAGE FORM, BID (1 X 200 MG)
     Route: 048
     Dates: start: 201411
  2. TASIGNA [Suspect]
     Active Substance: NILOTINIB
     Dosage: 2 DOSAGE FORM (200 MG), BID
     Route: 048
     Dates: start: 2016
  3. ASPIRIN [Concomitant]
     Active Substance: ASPIRIN
     Indication: Ischaemia
     Dosage: 1 DOSAGE FORM, QD, TABLET
     Route: 048

REACTIONS (13)
  - Paralysis [Unknown]
  - Diabetes mellitus [Not Recovered/Not Resolved]
  - Glycosylated haemoglobin increased [Unknown]
  - Gastritis [Unknown]
  - Blood glucose increased [Unknown]
  - Constipation [Unknown]
  - Malaise [Unknown]
  - Weight decreased [Recovered/Resolved]
  - Weight increased [Recovered/Resolved]
  - Arthralgia [Recovering/Resolving]
  - Insomnia [Recovering/Resolving]
  - Pain in extremity [Recovering/Resolving]
  - Skin plaque [Unknown]

NARRATIVE: CASE EVENT DATE: 20190101
